FAERS Safety Report 9314540 (Version 1)
Quarter: 2013Q2

REPORT INFORMATION
  Report Type: Report from Study
  Country: TR (occurrence: TR)
  Receive Date: 20130529
  Receipt Date: 20130529
  Transmission Date: 20140414
  Serious: Yes (Other)
  Sender: FDA-Public Use
  Company Number: TR-US-EMD SERONO, INC.-7213354

PATIENT
  Sex: Female
  Weight: 60 kg

DRUGS (3)
  1. REBIF [Suspect]
     Indication: MULTIPLE SCLEROSIS
     Route: 058
     Dates: start: 200909
  2. MINOSET [Suspect]
     Indication: PYREXIA
     Route: 048
     Dates: start: 200909
  3. DOLOREX /00068902/ [Suspect]
     Indication: ANALGESIC THERAPY
     Route: 048

REACTIONS (8)
  - Anti-thyroid antibody positive [Not Recovered/Not Resolved]
  - Granulocyte count decreased [Not Recovered/Not Resolved]
  - Red cell distribution width increased [Not Recovered/Not Resolved]
  - Vitamin B12 decreased [Not Recovered/Not Resolved]
  - Lymphocyte percentage increased [Not Recovered/Not Resolved]
  - Decreased appetite [Not Recovered/Not Resolved]
  - Weight decreased [Not Recovered/Not Resolved]
  - Arthralgia [Not Recovered/Not Resolved]
